FAERS Safety Report 22253555 (Version 4)
Quarter: 2023Q4

REPORT INFORMATION
  Report Type: Spontaneous
  Country: JP (occurrence: JP)
  Receive Date: 20230426
  Receipt Date: 20231103
  Transmission Date: 20240109
  Serious: Yes (Other)
  Sender: FDA-Public Use
  Company Number: JP-MSD-M2023-15811

PATIENT
  Age: 86 Year
  Sex: Male
  Weight: 78 kg

DRUGS (7)
  1. LAGEVRIO [Suspect]
     Active Substance: MOLNUPIRAVIR
     Indication: COVID-19 treatment
     Dosage: 800 MILLIGRAM, ONCE AT NIGHT
     Route: 048
     Dates: start: 20230202, end: 20230202
  2. LAGEVRIO [Suspect]
     Active Substance: MOLNUPIRAVIR
     Dosage: 800 MILLIGRAM, ONCE, AT MORNING
     Route: 048
     Dates: start: 20230203, end: 20230203
  3. TRANEXAMIC ACID [Concomitant]
     Active Substance: TRANEXAMIC ACID
     Indication: COVID-19
     Dosage: 1 DOSAGE FORM, TID
     Route: 048
     Dates: start: 20230202, end: 20230203
  4. CARBOCYSTEINE [Concomitant]
     Active Substance: CARBOCYSTEINE
     Indication: COVID-19
     Dosage: 500 MILLIGRAM, TID
     Route: 048
     Dates: start: 20230202, end: 20230203
  5. DEXTROMETHORPHAN HYDROBROMIDE [Concomitant]
     Active Substance: DEXTROMETHORPHAN HYDROBROMIDE
     Indication: COVID-19
     Dosage: 30 MILLIGRAM, TID
     Route: 048
     Dates: start: 20230202, end: 20230203
  6. ACETAMINOPHEN [Concomitant]
     Active Substance: ACETAMINOPHEN
     Indication: COVID-19
     Dosage: 400 MILLIGRAM, PRN
     Route: 048
     Dates: start: 20230202, end: 20230203
  7. REBAMIPIDE [Concomitant]
     Active Substance: REBAMIPIDE
     Indication: COVID-19
     Dosage: 100 MILLIGRAM, TID
     Route: 048
     Dates: start: 20230202, end: 20230203

REACTIONS (3)
  - Altered state of consciousness [Recovered/Resolved]
  - Seizure [Recovered/Resolved]
  - Vomiting [Recovered/Resolved]

NARRATIVE: CASE EVENT DATE: 20230203
